FAERS Safety Report 4605742-0 (Version None)
Quarter: 2005Q2

REPORT INFORMATION
  Report Type: 
  Country: None (occurrence: None)
  Receive Date: 20050214
  Receipt Date: 20050121
  Transmission Date: 20051028
  Serious: No
  Sender: FDA-Public Use
  Company Number: USA041286766

PATIENT
  Age: 55 Year
  Sex: Male

DRUGS (6)
  1. CIALIS [Suspect]
     Dosage: 20 MG
     Dates: start: 20041213, end: 20041219
  2. ZYPREXA [Concomitant]
  3. NEURONTIN (GABAPENTIN PFIZER) [Concomitant]
  4. LIPITOR [Concomitant]
  5. ASPIRIN [Concomitant]
  6. MULTI-VITAMIN [Concomitant]

REACTIONS (7)
  - DRUG INEFFECTIVE [None]
  - EJACULATION FAILURE [None]
  - HAEMATURIA [None]
  - PENILE PAIN [None]
  - PROSTATITIS [None]
  - TESTICULAR PAIN [None]
  - THERAPEUTIC RESPONSE DECREASED [None]
